FAERS Safety Report 19908178 (Version 1)
Quarter: 2021Q4

REPORT INFORMATION
  Report Type: Spontaneous
  Country: CA (occurrence: CA)
  Receive Date: 20211001
  Receipt Date: 20211001
  Transmission Date: 20220303
  Serious: Yes (Hospitalization)
  Sender: FDA-Public Use
  Company Number: CA-TEVA-2021-CA-1959170

PATIENT
  Age: 88 Year
  Sex: Female

DRUGS (1)
  1. QUININE SULFATE [Suspect]
     Active Substance: QUININE SULFATE
     Route: 048

REACTIONS (2)
  - Haematoma [Unknown]
  - Thrombocytopenia [Unknown]
